FAERS Safety Report 21972288 (Version 2)
Quarter: 2023Q1

REPORT INFORMATION
  Report Type: Spontaneous
  Country: JP (occurrence: JP)
  Receive Date: 20230209
  Receipt Date: 20230302
  Transmission Date: 20230417
  Serious: Yes (Hospitalization)
  Sender: FDA-Public Use
  Company Number: JP-JNJFOC-20230217374

PATIENT
  Sex: Male

DRUGS (3)
  1. INVEGA [Suspect]
     Active Substance: PALIPERIDONE
     Indication: Schizophrenia
     Dosage: DOSE UNKNOWN
     Route: 048
     Dates: start: 20230110, end: 2023
  2. INVEGA [Suspect]
     Active Substance: PALIPERIDONE
     Dosage: DOSE UNKNOWN, AT BEDTIME
     Route: 048
     Dates: start: 20230206, end: 20230210
  3. INVEGA [Suspect]
     Active Substance: PALIPERIDONE
     Dosage: DOSE UNKNOWN, AFTER BREAKFAST
     Route: 048
     Dates: start: 20230211

REACTIONS (3)
  - Hospitalisation [Unknown]
  - Inappropriate schedule of product administration [Recovering/Resolving]
  - Off label use [Recovering/Resolving]

NARRATIVE: CASE EVENT DATE: 20230101
